FAERS Safety Report 19228483 (Version 3)
Quarter: 2021Q2

REPORT INFORMATION
  Report Type: Spontaneous
  Country: GB (occurrence: GB)
  Receive Date: 20210507
  Receipt Date: 20210627
  Transmission Date: 20210717
  Serious: Yes (Other)
  Sender: FDA-Public Use
  Company Number: GB-AUROBINDO-AUR-APL-2021-018053

PATIENT
  Age: 38 Year
  Sex: Male
  Weight: 80 kg

DRUGS (1)
  1. SERTRALINE [Suspect]
     Active Substance: SERTRALINE HYDROCHLORIDE
     Indication: ANXIETY
     Dosage: 50 MILLIGRAM, ONCE A DAY
     Route: 048
     Dates: start: 20210421, end: 20210426

REACTIONS (5)
  - Bruxism [Recovered/Resolved]
  - Chest discomfort [Recovered/Resolved]
  - Hallucination, visual [Recovered/Resolved]
  - Insomnia [Recovered/Resolved]
  - Joint stiffness [Recovered/Resolved]

NARRATIVE: CASE EVENT DATE: 20210422
